FAERS Safety Report 8534240-7 (Version None)
Quarter: 2012Q3

REPORT INFORMATION
  Report Type: 
  Country: None (occurrence: None)
  Receive Date: 20120724
  Receipt Date: 20120716
  Transmission Date: 20120928
  Serious: Yes (Other)
  Sender: FDA-Public Use
  Company Number: US-ABBOTT-12P-163-0956834-00

PATIENT
  Age: 28 Year
  Sex: Female

DRUGS (2)
  1. ZYRIA BIRTH CONTROL WHICH I THINK IS GENERIC OF YAZ [Concomitant]
     Indication: PRODUCT USED FOR UNKNOWN INDICATION
  2. HUMIRA [Suspect]
     Indication: CROHN'S DISEASE

REACTIONS (2)
  - BUNION [None]
  - INJECTION SITE PAIN [None]
